FAERS Safety Report 4920663-1 (Version None)
Quarter: 2006Q1

REPORT INFORMATION
  Report Type: 
  Country: None (occurrence: None)
  Receive Date: 20060217
  Receipt Date: 20060131
  Transmission Date: 20060701
  Serious: Yes (Death, Hospitalization)
  Sender: FDA-Public Use
  Company Number: COT_0394_2006

PATIENT
  Age: 49 Year
  Sex: Female
  Weight: 62.5964 kg

DRUGS (10)
  1. VENTAVIS [Suspect]
     Indication: PULMONARY HYPERTENSION
     Dosage: 2.5 MCG 5 TO 6X/DAY IH
     Route: 055
     Dates: start: 20060124
  2. K-DUR 10 [Concomitant]
  3. AMBIEN [Concomitant]
  4. NORVASC [Concomitant]
  5. LACTULOSE [Concomitant]
  6. ALDACTONE [Concomitant]
  7. INDERAL [Concomitant]
  8. BUMEX [Concomitant]
  9. TYLENOL (CAPLET) [Concomitant]
  10. TORSEMIDE [Concomitant]

REACTIONS (14)
  - ACUTE RESPIRATORY FAILURE [None]
  - ASTHENIA [None]
  - BRADYARRHYTHMIA [None]
  - BRADYCARDIA [None]
  - CYANOSIS [None]
  - DIARRHOEA [None]
  - DYSPNOEA [None]
  - ELECTROLYTE IMBALANCE [None]
  - HYPERKALAEMIA [None]
  - HYPOTENSION [None]
  - HYPOVOLAEMIA [None]
  - METABOLIC ACIDOSIS [None]
  - NAUSEA [None]
  - RENAL FAILURE ACUTE [None]
